FAERS Safety Report 10026249 (Version 2)
Quarter: 2014Q3

REPORT INFORMATION
  Report Type: Spontaneous
  Country: JP (occurrence: JP)
  Receive Date: 20140320
  Receipt Date: 20140701
  Transmission Date: 20150326
  Serious: Yes (Hospitalization, Other)
  Sender: FDA-Public Use
  Company Number: JP-AMGEN-JPNSP2014019340

PATIENT
  Age: 62 Year
  Sex: Female
  Weight: 39 kg

DRUGS (5)
  1. VECTIBIX [Suspect]
     Active Substance: PANITUMUMAB
     Indication: RECTOSIGMOID CANCER
     Dosage: 230 MG, Q2WEEKS
     Route: 041
     Dates: start: 20130717, end: 20130731
  2. VECTIBIX [Suspect]
     Active Substance: PANITUMUMAB
     Dosage: 200 MG, Q2WEEKS
     Route: 041
     Dates: start: 20130828, end: 20130828
  3. OXALIPLATIN. [Suspect]
     Active Substance: OXALIPLATIN
     Indication: RECTOSIGMOID CANCER
     Dosage: 100 MG, Q2WEEKS
     Route: 041
     Dates: start: 20130703, end: 20130828
  4. FLUOROURACIL. [Suspect]
     Active Substance: FLUOROURACIL
     Indication: RECTOSIGMOID CANCER
     Dosage: 3500 MG, Q2WEEKS
     Route: 042
     Dates: start: 20130703, end: 20130830
  5. CALCIUM LEVOFOLINATE [Suspect]
     Active Substance: LEVOLEUCOVORIN CALCIUM
     Indication: RECTOSIGMOID CANCER
     Dosage: 250 MG, Q2WEEKS
     Route: 041
     Dates: start: 20130703, end: 20130828

REACTIONS (1)
  - Gastrointestinal perforation [Recovering/Resolving]

NARRATIVE: CASE EVENT DATE: 20130830
